FAERS Safety Report 22211020 (Version 1)
Quarter: 2023Q2

REPORT INFORMATION
  Report Type: Spontaneous
  Country: DE (occurrence: DE)
  Receive Date: 20230414
  Receipt Date: 20230414
  Transmission Date: 20230721
  Serious: Yes (Other)
  Sender: FDA-Public Use
  Company Number: DE-002147023-NVSC2023DE085480

PATIENT
  Sex: Male

DRUGS (2)
  1. ILARIS [Suspect]
     Active Substance: CANAKINUMAB
     Indication: Familial mediterranean fever
     Dosage: UNK (STOP DATE: 2023)
     Route: 065
     Dates: start: 202302
  2. ILARIS [Suspect]
     Active Substance: CANAKINUMAB
     Dosage: UNK (START DATE: 2023)
     Route: 065

REACTIONS (2)
  - Thrombocytopenia [Unknown]
  - Inappropriate schedule of product administration [Unknown]
